FAERS Safety Report 26117473 (Version 1)
Quarter: 2025Q4

REPORT INFORMATION
  Report Type: Report from Study
  Country: CO (occurrence: CO)
  Receive Date: 20251203
  Receipt Date: 20251203
  Transmission Date: 20260118
  Serious: Yes (Hospitalization)
  Sender: ASTELLAS
  Company Number: CO-ASTELLAS-2025-AER-066344

PATIENT
  Age: 44 Year
  Sex: Female
  Weight: 50 kg

DRUGS (2)
  1. PROGRAF [Suspect]
     Active Substance: TACROLIMUS
     Indication: Renal transplant
     Dosage: TACROLIMUS 5MG (1 CAPSULE) AND TACROLIMUS 1MG (1 CAPSULE), A DAILY DOSE OF 6MG, EVERY 24 HOURS
     Route: 048
     Dates: end: 20251122
  2. PROGRAF [Suspect]
     Active Substance: TACROLIMUS
     Indication: Renal transplant
     Dosage: TACROLIMUS 5MG (1 CAPSULE) AND TACROLIMUS 1MG (1 CAPSULE), A DAILY DOSE OF 6MG, EVERY 24 HOURS
     Route: 048
     Dates: end: 20251122

REACTIONS (3)
  - Abdominal pain upper [Recovered/Resolved]
  - Diarrhoea [Recovered/Resolved]
  - Weight decreased [Recovered/Resolved]

NARRATIVE: CASE EVENT DATE: 20251030
